FAERS Safety Report 9370340 (Version 1)
Quarter: 2013Q2

REPORT INFORMATION
  Report Type: Spontaneous
  Country: CZ (occurrence: CZ)
  Receive Date: 20130626
  Receipt Date: 20130626
  Transmission Date: 20140414
  Serious: Yes (Hospitalization)
  Sender: FDA-Public Use
  Company Number: CZ-TEVA-414090ISR

PATIENT
  Age: 27 Year
  Sex: Female

DRUGS (2)
  1. NITROFURANTOIN - RATIOPHARM 100 MG [Suspect]
     Indication: URINARY TRACT INFECTION
     Dosage: 300 MILLIGRAM DAILY; PROLONGED-RELEASE
     Route: 048
     Dates: start: 20130527, end: 20130602
  2. YADINE [Concomitant]
     Indication: ORAL CONTRACEPTION
     Route: 048

REACTIONS (2)
  - Urticaria [Recovered/Resolved]
  - Dermatitis allergic [Recovered/Resolved]
